FAERS Safety Report 5971433-7 (Version None)
Quarter: 2008Q4

REPORT INFORMATION
  Report Type: 
  Country: None (occurrence: None)
  Receive Date: 20081130
  Receipt Date: 20081125
  Transmission Date: 20090506
  Serious: Yes (Hospitalization, Other)
  Sender: FDA-Public Use
  Company Number: GB-PFIZER INC-2008100689

PATIENT
  Age: 39 Year
  Sex: Female

DRUGS (3)
  1. MISOPROSTOL [Suspect]
     Indication: ABORTION
     Dosage: TEXT:800MCG
     Route: 067
  2. MISOPROSTOL [Suspect]
     Dosage: TEXT:400 MCG
     Route: 048
  3. MIFEPRISTONE [Suspect]
     Indication: ABORTION INDUCED
     Dosage: DAILY DOSE:200MG
     Route: 048

REACTIONS (7)
  - ABDOMINAL PAIN [None]
  - DRUG EXPOSURE DURING PREGNANCY [None]
  - HAEMOGLOBIN DECREASED [None]
  - HYPOTENSION [None]
  - OFF LABEL USE [None]
  - TREMOR [None]
  - UTERINE RUPTURE [None]
